FAERS Safety Report 17383499 (Version 1)
Quarter: 2020Q1

REPORT INFORMATION
  Report Type: Spontaneous
  Country: US (occurrence: US)
  Receive Date: 20200206
  Receipt Date: 20200206
  Transmission Date: 20200409
  Serious: No
  Sender: FDA-Public Use
  Company Number: US-ABBVIE-19K-163-2988437-00

PATIENT
  Sex: Female

DRUGS (1)
  1. HUMIRA [Suspect]
     Active Substance: ADALIMUMAB
     Indication: PRODUCT USED FOR UNKNOWN INDICATION
     Route: 058

REACTIONS (8)
  - Feeling hot [Unknown]
  - Musculoskeletal discomfort [Recovered/Resolved]
  - Thinking abnormal [Unknown]
  - Disorientation [Unknown]
  - Heart rate increased [Unknown]
  - Peripheral coldness [Unknown]
  - Dizziness [Unknown]
  - Head discomfort [Recovered/Resolved]
